FAERS Safety Report 9697806 (Version 1)
Quarter: 2013Q4

REPORT INFORMATION
  Report Type: Spontaneous
  Country: US (occurrence: US)
  Receive Date: 20131120
  Receipt Date: 20131120
  Transmission Date: 20140711
  Serious: No
  Sender: FDA-Public Use
  Company Number: US-PFIZER INC-2013330574

PATIENT
  Age: 77 Year
  Sex: Female
  Weight: 73.47 kg

DRUGS (2)
  1. CELEBREX [Suspect]
     Indication: RHEUMATOID ARTHRITIS
     Dosage: 200 MG, ONCE A DAY IN THE MORNING
     Route: 048
     Dates: start: 2009
  2. PLAVIX [Concomitant]
     Indication: CEREBROVASCULAR ACCIDENT
     Dosage: 75 MG, UNK

REACTIONS (2)
  - Body height decreased [Unknown]
  - Alopecia [Unknown]
